FAERS Safety Report 5675292-1 (Version None)
Quarter: 2008Q1

REPORT INFORMATION
  Report Type: 
  Country: None (occurrence: None)
  Receive Date: 20080320
  Receipt Date: 20080312
  Transmission Date: 20080703
  Serious: Yes (Death)
  Sender: FDA-Public Use
  Company Number: US-GENENTECH-257545

PATIENT
  Age: 62 Year
  Sex: Female

DRUGS (4)
  1. HERCEPTIN [Suspect]
     Indication: BREAST CANCER
     Dosage: UNK, Q3W
     Dates: start: 20071201
  2. FENTANYL [Concomitant]
     Indication: BACK PAIN
  3. MS CONTIN [Concomitant]
     Indication: BACK PAIN
  4. TRAMADOL HCL [Concomitant]
     Indication: BACK PAIN

REACTIONS (1)
  - CEREBRAL HAEMORRHAGE [None]
